FAERS Safety Report 5115968-8 (Version None)
Quarter: 2006Q3

REPORT INFORMATION
  Report Type: 
  Country: None (occurrence: None)
  Receive Date: 20060927
  Receipt Date: 20051229
  Transmission Date: 20061208
  Serious: Yes (Other)
  Sender: FDA-Public Use
  Company Number: US-BRISTOL-MYERS SQUIBB COMPANY-13232780

PATIENT
  Age: 58 Year
  Sex: Female

DRUGS (4)
  1. DEFINITY [Suspect]
     Indication: CARDIOVASCULAR EVALUATION
     Route: 040
     Dates: start: 20051229, end: 20051229
  2. LISINOPRIL [Concomitant]
  3. ATENOLOL [Concomitant]
  4. TRIAMTERENE [Concomitant]

REACTIONS (2)
  - BLOOD PRESSURE INCREASED [None]
  - VOMITING [None]
